FAERS Safety Report 6279982-1 (Version None)
Quarter: 2009Q3

REPORT INFORMATION
  Report Type: 
  Country: None (occurrence: None)
  Receive Date: 20090723
  Receipt Date: 20090429
  Transmission Date: 20100115
  Serious: No
  Sender: FDA-Public Use
  Company Number: US-AMGEN-KDL345157

PATIENT
  Sex: Male
  Weight: 69.9 kg

DRUGS (14)
  1. PROCRIT [Suspect]
     Indication: ANAEMIA
     Route: 058
     Dates: start: 20090301
  2. AMIODARONE HCL [Concomitant]
     Route: 048
  3. FOLIC ACID [Concomitant]
     Route: 048
  4. VITAMIN B-12 [Concomitant]
  5. BACLOFEN [Concomitant]
     Route: 048
  6. DIGOXIN [Concomitant]
     Route: 048
  7. LACTOBACILLUS ACIDOPHILUS [Concomitant]
     Route: 048
  8. ASCORBIC ACID [Concomitant]
     Route: 048
  9. ZINC [Concomitant]
  10. CALCIUM [Concomitant]
  11. IRON [Concomitant]
  12. PREVACID [Concomitant]
  13. REGLAN [Concomitant]
  14. MINOCYCLINE HCL [Concomitant]
     Route: 048

REACTIONS (1)
  - THERAPEUTIC RESPONSE DECREASED [None]
